FAERS Safety Report 14027576 (Version 1)
Quarter: 2017Q3

REPORT INFORMATION
  Report Type: Spontaneous
  Country: US (occurrence: US)
  Receive Date: 20170929
  Receipt Date: 20170929
  Transmission Date: 20171128
  Serious: No
  Sender: FDA-Public Use
  Company Number: US-PFIZER INC-2017413750

PATIENT
  Age: 65 Year
  Sex: Female
  Weight: 94.35 kg

DRUGS (2)
  1. CELEBREX [Suspect]
     Active Substance: CELECOXIB
     Indication: ARTHRITIS
     Dosage: 100 MG, 2X/DAY
     Route: 048
  2. CELEBREX [Suspect]
     Active Substance: CELECOXIB
     Dosage: 200 MG, UNK

REACTIONS (4)
  - Drug ineffective [Unknown]
  - Neck pain [Not Recovered/Not Resolved]
  - Condition aggravated [Not Recovered/Not Resolved]
  - Musculoskeletal pain [Not Recovered/Not Resolved]

NARRATIVE: CASE EVENT DATE: 20170810
